FAERS Safety Report 18665042 (Version 6)
Quarter: 2021Q4

REPORT INFORMATION
  Report Type: Report from Study
  Country: FR (occurrence: FR)
  Receive Date: 20201225
  Receipt Date: 20211110
  Transmission Date: 20220303
  Serious: Yes (Hospitalization, Other)
  Sender: FDA-Public Use
  Company Number: NVSC2020FR341671

PATIENT
  Age: 16 Month
  Sex: Female
  Weight: 9.88 kg

DRUGS (4)
  1. ZOLGENSMA [Suspect]
     Active Substance: ONASEMNOGENE ABEPARVOVEC-XIOI
     Indication: Spinal muscular atrophy
     Dosage: 1,05?10E15 COPIES, ONCE/SINGLE
     Route: 042
     Dates: start: 20201126, end: 20201126
  2. SOLUPRED [Concomitant]
     Indication: Prophylaxis
     Dosage: 1 MG/KG, QD
     Route: 048
     Dates: start: 20201125, end: 20210109
  3. SOLUPRED [Concomitant]
     Dosage: 2 MG/KG, QD
     Route: 048
     Dates: start: 20210110, end: 20210303
  4. HYDROCORTISONE [Concomitant]
     Active Substance: HYDROCORTISONE
     Indication: Product used for unknown indication
     Dosage: UNK
     Route: 065
     Dates: end: 202108

REACTIONS (8)
  - Hepatic cytolysis [Not Recovered/Not Resolved]
  - Aspartate aminotransferase increased [Unknown]
  - Alanine aminotransferase increased [Unknown]
  - Troponin I increased [Unknown]
  - Thrombocytopenia [Recovered/Resolved]
  - Blood creatine phosphokinase increased [Unknown]
  - Constipation [Unknown]
  - Bilirubin conjugated increased [Unknown]

NARRATIVE: CASE EVENT DATE: 20201204
